FAERS Safety Report 16171337 (Version 1)
Quarter: 2019Q2

REPORT INFORMATION
  Report Type: Spontaneous
  Country: US (occurrence: US)
  Receive Date: 20190408
  Receipt Date: 20190408
  Transmission Date: 20190711
  Serious: No
  Sender: FDA-Public Use
  Company Number: US-TARO-2019TAR00088

PATIENT
  Sex: Male

DRUGS (3)
  1. FLUOROURACIL TOPICAL CREAM USP 5% [Suspect]
     Active Substance: FLUOROURACIL
     Dosage: APPLY A SMALL AMOUNT, 2X/DAY
     Route: 061
  2. FLUOROURACIL TOPICAL CREAM USP 5% [Suspect]
     Active Substance: FLUOROURACIL
     Indication: SQUAMOUS CELL CARCINOMA
     Dosage: APPLY A SMALL AMOUNT, 1X/DAY
     Route: 061
     Dates: start: 201708, end: 201709
  3. FLUOROURACIL TOPICAL CREAM USP 5% [Suspect]
     Active Substance: FLUOROURACIL
     Dosage: APPLY A SMALL AMOUNT, 2X/DAY
     Route: 061
     Dates: start: 2017

REACTIONS (5)
  - Drug ineffective for unapproved indication [Recovered/Resolved]
  - Product storage error [Recovered/Resolved]
  - Product quality issue [Recovered/Resolved]
  - Expired product administered [Recovered/Resolved]
  - Application site paraesthesia [Recovered/Resolved]

NARRATIVE: CASE EVENT DATE: 201708
